FAERS Safety Report 17601878 (Version 1)
Quarter: 2020Q1

REPORT INFORMATION
  Report Type: Report from Study
  Country: US (occurrence: US)
  Receive Date: 20200330
  Receipt Date: 20200330
  Transmission Date: 20200409
  Serious: Yes (Other)
  Sender: FDA-Public Use
  Company Number: US-ACTELION-A-NJ2019-190210

PATIENT
  Sex: Male
  Weight: 81.63 kg

DRUGS (2)
  1. VELETRI [Suspect]
     Active Substance: EPOPROSTENOL
     Indication: PULMONARY ARTERIAL HYPERTENSION
     Dosage: 18 NG/KG, PER MIN
     Route: 042
  2. AMLODIPINE [Concomitant]
     Active Substance: AMLODIPINE BESYLATE

REACTIONS (9)
  - Musculoskeletal discomfort [Unknown]
  - Application site irritation [Recovering/Resolving]
  - Pain in jaw [Unknown]
  - Spinal column injury [Unknown]
  - Muscle strain [Unknown]
  - Pain [Unknown]
  - Spinal compression fracture [Unknown]
  - Pain in extremity [Unknown]
  - Diarrhoea [Unknown]
